FAERS Safety Report 14795294 (Version 3)
Quarter: 2019Q4

REPORT INFORMATION
  Report Type: Spontaneous
  Country: US (occurrence: US)
  Receive Date: 20180423
  Receipt Date: 20191106
  Transmission Date: 20200122
  Serious: No
  Sender: FDA-Public Use
  Company Number: US-ACTELION-A-NJ2018-170839

PATIENT
  Age: 49 Year
  Sex: Female

DRUGS (3)
  1. REVATIO [Concomitant]
     Active Substance: SILDENAFIL CITRATE
  2. REMODULIN [Suspect]
     Active Substance: TREPROSTINIL
     Indication: PULMONARY ARTERIAL HYPERTENSION
     Dosage: 25 NG/KG, PER MIN
     Route: 058
     Dates: start: 20140303
  3. OPSUMIT [Suspect]
     Active Substance: MACITENTAN
     Indication: PULMONARY ARTERIAL HYPERTENSION
     Dosage: UNK
     Route: 048
     Dates: start: 20160325

REACTIONS (4)
  - Breast cyst [Unknown]
  - Presyncope [Unknown]
  - Paranasal sinus hypersecretion [Unknown]
  - Right ventricular failure [Unknown]

NARRATIVE: CASE EVENT DATE: 201812
